FAERS Safety Report 4662857-9 (Version None)
Quarter: 2005Q2

REPORT INFORMATION
  Report Type: 
  Country: None (occurrence: None)
  Receive Date: 20050502
  Receipt Date: 20050309
  Transmission Date: 20051028
  Serious: No
  Sender: FDA-Public Use
  Company Number: 200510814US

PATIENT
  Age: 40 Year
  Sex: Male
  Weight: 86 kg

DRUGS (2)
  1. KETEK [Suspect]
     Indication: SINUSITIS
     Dosage: QD
     Dates: start: 20050114, end: 20050119
  2. VITAMINS [Concomitant]

REACTIONS (5)
  - COLOUR BLINDNESS [None]
  - PHOTOPSIA [None]
  - VISION BLURRED [None]
  - VISUAL BRIGHTNESS [None]
  - VISUAL DISTURBANCE [None]
